FAERS Safety Report 18168988 (Version 1)
Quarter: 2020Q3

REPORT INFORMATION
  Report Type: Spontaneous
  Country: US (occurrence: US)
  Receive Date: 20200819
  Receipt Date: 20200819
  Transmission Date: 20201103
  Serious: No
  Sender: FDA-Public Use
  Company Number: US-PFIZER INC-2020319406

PATIENT
  Age: 88 Year
  Sex: Female
  Weight: 85.73 kg

DRUGS (1)
  1. IBRANCE [Suspect]
     Active Substance: PALBOCICLIB
     Dosage: 100 MG
     Dates: start: 20200719

REACTIONS (3)
  - Ageusia [Unknown]
  - Alopecia [Unknown]
  - Decreased appetite [Unknown]
